FAERS Safety Report 14687710 (Version 1)
Quarter: 2018Q1

REPORT INFORMATION
  Report Type: Spontaneous
  Country: US (occurrence: US)
  Receive Date: 20180328
  Receipt Date: 20180328
  Transmission Date: 20180509
  Serious: No
  Sender: FDA-Public Use
  Company Number: US-BIOGEN-2015BI019625

PATIENT
  Age: 73 Year
  Sex: Female

DRUGS (2)
  1. PLEGRIDY [Suspect]
     Active Substance: PEGINTERFERON BETA-1A
     Dates: start: 20150109
  2. PLEGRIDY [Suspect]
     Active Substance: PEGINTERFERON BETA-1A
     Indication: MULTIPLE SCLEROSIS
     Route: 065
     Dates: start: 20150106

REACTIONS (8)
  - Injection site pain [Not Recovered/Not Resolved]
  - Injection site warmth [Not Recovered/Not Resolved]
  - Accidental exposure to product [Recovered/Resolved]
  - Injection site reaction [Not Recovered/Not Resolved]
  - Device malfunction [Unknown]
  - Rash [Not Recovered/Not Resolved]
  - Injection site erythema [Not Recovered/Not Resolved]
  - Injection site haemorrhage [Unknown]

NARRATIVE: CASE EVENT DATE: 201501
